FAERS Safety Report 8814912 (Version 1)
Quarter: 2012Q4

REPORT INFORMATION
  Report Type: 
  Country: US (occurrence: US)
  Receive Date: 20120928
  Receipt Date: 20120928
  Transmission Date: 20130627
  Serious: Yes (Other)
  Sender: FDA-Public Use
  Company Number: US-PFIZER INC-2012236653

PATIENT
  Sex: Female

DRUGS (1)
  1. DEPO-PROVERA [Suspect]
     Indication: PREMENSTRUAL SYNDROME
     Dosage: 150 mg, UNK
     Route: 030

REACTIONS (4)
  - Osteoporosis [Unknown]
  - Blood test abnormal [Unknown]
  - Drug administration error [Unknown]
  - Drug ineffective for unapproved indication [Unknown]
